FAERS Safety Report 5146290-1 (Version None)
Quarter: 2006Q4

REPORT INFORMATION
  Report Type: 
  Country: None (occurrence: None)
  Receive Date: 20061102
  Receipt Date: 20061019
  Transmission Date: 20070319
  Serious: Yes (Hospitalization)
  Sender: FDA-Public Use
  Company Number: 2006124931

PATIENT
  Age: 54 Year
  Sex: Male
  Weight: 74 kg

DRUGS (1)
  1. SUTENT [Suspect]
     Indication: METASTATIC RENAL CELL CARCINOMA
     Dosage: 50 MG (50 MG, FREQUENCY: ONE/DAY INTERVAL: EVERYDAY), ORAL
     Route: 048
     Dates: start: 20060906, end: 20061005

REACTIONS (7)
  - CHRONIC OBSTRUCTIVE PULMONARY DISEASE [None]
  - CONVULSION [None]
  - DIARRHOEA [None]
  - INFECTION [None]
  - NAUSEA [None]
  - PNEUMONIA [None]
  - VOMITING [None]
